FAERS Safety Report 6128355-0 (Version None)
Quarter: 2009Q1

REPORT INFORMATION
  Report Type: 
  Country: None (occurrence: None)
  Receive Date: 20090323
  Receipt Date: 20090319
  Transmission Date: 20090719
  Serious: Yes (Other)
  Sender: FDA-Public Use
  Company Number: B0565879A

PATIENT
  Age: 85 Year
  Sex: Female

DRUGS (6)
  1. PAXIL [Suspect]
     Indication: DEPRESSION
     Dosage: 10MG TWENTY TIMES PER DAY
     Route: 048
  2. CARBIDOPA AND LEVODOPA [Concomitant]
     Indication: PARKINSON'S DISEASE
     Dosage: 100MG THREE TIMES PER DAY
     Route: 048
  3. CYANOCOBALAMIN [Concomitant]
     Dosage: 500MCG THREE TIMES PER DAY
     Route: 048
  4. GASTER [Concomitant]
     Route: 065
  5. SEROQUEL [Concomitant]
     Dosage: 50MG THREE TIMES PER DAY
     Route: 048
  6. DIOVAN [Concomitant]
     Route: 048

REACTIONS (2)
  - ALTERED STATE OF CONSCIOUSNESS [None]
  - BLOOD PRESSURE DECREASED [None]
